FAERS Safety Report 10274502 (Version 1)
Quarter: 2014Q3

REPORT INFORMATION
  Report Type: Spontaneous
  Country: US (occurrence: US)
  Receive Date: 20140702
  Receipt Date: 20140702
  Transmission Date: 20150326
  Serious: Yes (Hospitalization)
  Sender: FDA-Public Use
  Company Number: US-PFIZER INC-2014182563

PATIENT
  Age: 63 Year
  Sex: Female
  Weight: 52.61 kg

DRUGS (2)
  1. CORGARD [Suspect]
     Active Substance: NADOLOL
     Indication: HEART RATE INCREASED
     Dosage: 40 MG, 2X/DAY
     Route: 048
     Dates: start: 2004
  2. CORGARD [Suspect]
     Active Substance: NADOLOL
     Dosage: 40 MG, 1X/DAY
     Route: 048
     Dates: end: 2014

REACTIONS (2)
  - Supraventricular tachycardia [Recovered/Resolved]
  - Drug administration error [Unknown]

NARRATIVE: CASE EVENT DATE: 2014
